FAERS Safety Report 8438390-5 (Version None)
Quarter: 2012Q2

REPORT INFORMATION
  Report Type: 
  Country: None (occurrence: None)
  Receive Date: 20120614
  Receipt Date: 20120605
  Transmission Date: 20120825
  Serious: Yes (Other)
  Sender: FDA-Public Use
  Company Number: US-TEVA-341802USA

PATIENT
  Sex: Female

DRUGS (1)
  1. COPAXONE [Suspect]
     Indication: MULTIPLE SCLEROSIS
     Dosage: 20 MILLIGRAM;
     Route: 058
     Dates: start: 20101130

REACTIONS (5)
  - MULTIPLE SCLEROSIS [None]
  - HYPOAESTHESIA [None]
  - VISUAL ACUITY REDUCED [None]
  - URINARY TRACT INFECTION [None]
  - ABNORMAL LOSS OF WEIGHT [None]
